FAERS Safety Report 11226391 (Version 4)
Quarter: 2015Q3

REPORT INFORMATION
  Report Type: Spontaneous
  Country: AR (occurrence: AR)
  Receive Date: 20150629
  Receipt Date: 20150731
  Transmission Date: 20151125
  Serious: Yes (Other)
  Sender: FDA-Public Use
  Company Number: CHPA2015AR007701

PATIENT
  Age: 53 Year
  Sex: Female

DRUGS (3)
  1. NICOTINELL [Suspect]
     Active Substance: NICOTINE
     Indication: PRODUCT USED FOR UNKNOWN INDICATION
     Dosage: UNK
     Route: 065
  2. NICOTINELL [Suspect]
     Active Substance: NICOTINE
     Dosage: 6 DF, DAILY
     Route: 065
     Dates: end: 20150713
  3. NICOTINELL [Suspect]
     Active Substance: NICOTINE
     Indication: SMOKING CESSATION THERAPY
     Dosage: APPROX. 6 OR 10 PER DAY
     Route: 048
     Dates: end: 20150713

REACTIONS (6)
  - Binge eating [Not Recovered/Not Resolved]
  - Anxiety [Not Recovered/Not Resolved]
  - Nervousness [Unknown]
  - Chest discomfort [Not Recovered/Not Resolved]
  - Drug dependence [Unknown]
  - Drug withdrawal syndrome [Not Recovered/Not Resolved]

NARRATIVE: CASE EVENT DATE: 20150622
